FAERS Safety Report 24210565 (Version 1)
Quarter: 2024Q3

REPORT INFORMATION
  Report Type: Spontaneous
  Country: GB (occurrence: GB)
  Receive Date: 20240814
  Receipt Date: 20240814
  Transmission Date: 20241017
  Serious: Yes (Other)
  Sender: BAYER
  Company Number: None

PATIENT
  Sex: Female

DRUGS (1)
  1. CIPROFLOXACIN [Suspect]
     Active Substance: CIPROFLOXACIN
     Route: 048

REACTIONS (10)
  - Medication error [Unknown]
  - Nerve injury [Not Recovered/Not Resolved]
  - Bipolar I disorder [Recovering/Resolving]
  - Suicidal ideation [Recovering/Resolving]
  - Tendonitis [Recovering/Resolving]
  - Peripheral swelling [Recovering/Resolving]
  - Amenorrhoea [Not Recovered/Not Resolved]
  - Fatigue [Not Recovered/Not Resolved]
  - Hypoaesthesia [Not Recovered/Not Resolved]
  - Lethargy [None]
